FAERS Safety Report 5629933-5 (Version None)
Quarter: 2008Q1

REPORT INFORMATION
  Report Type: 
  Country: None (occurrence: None)
  Receive Date: 20080218
  Receipt Date: 20080204
  Transmission Date: 20080703
  Serious: Yes (Hospitalization)
  Sender: FDA-Public Use
  Company Number: GB-ROCHE-545520

PATIENT
  Age: 31 Year
  Sex: Female
  Weight: 79.8 kg

DRUGS (4)
  1. ORLISTAT [Suspect]
     Indication: OBESITY
     Route: 048
     Dates: start: 20071025
  2. OXYCONTIN [Concomitant]
     Indication: ANALGESIC THERAPY
     Route: 048
  3. OXYNORM [Concomitant]
     Indication: ANALGESIC THERAPY
     Dosage: TAKEN WHEN NEEDED
     Route: 048
  4. UNSPECIFIED MEDICATION [Concomitant]
     Indication: ANALGESIC THERAPY
     Dosage: DRUG NAME: PREGABLIN
     Route: 048

REACTIONS (1)
  - SPINAL DISORDER [None]
